FAERS Safety Report 5477586-1 (Version None)
Quarter: 2007Q4

REPORT INFORMATION
  Report Type: 
  Country: None (occurrence: None)
  Receive Date: 20071001
  Receipt Date: 20070917
  Transmission Date: 20080405
  Serious: Yes (Death, Hospitalization)
  Sender: FDA-Public Use
  Company Number: 2007-03093

PATIENT
  Age: 71 Year
  Sex: Female
  Weight: 56.3 kg

DRUGS (21)
  1. VELCADE [Suspect]
     Indication: MULTIPLE MYELOMA
     Dosage: 1.50 MG,
     Dates: start: 20061213, end: 20061223
  2. DEXAMETHASONE [Suspect]
     Indication: MULTIPLE MYELOMA
     Dosage: 40.00 MG,
     Dates: start: 20061216, end: 20061219
  3. THALIDOMIDE [Suspect]
     Indication: MULTIPLE MYELOMA
     Dosage: 200.00 MG,
     Dates: start: 20061216, end: 20061219
  4. CISPLATIN [Suspect]
     Indication: MULTIPLE MYELOMA
     Dosage: 15.00 MG,
     Dates: start: 20061216, end: 20061219
  5. DOXORUBICIN HCL [Suspect]
     Indication: MULTIPLE MYELOMA
     Dosage: 15.00 MG,
     Dates: start: 20061216, end: 20061219
  6. CYCLOPHOSPHAMIDE [Suspect]
     Indication: MULTIPLE MYELOMA
     Dosage: 612.00 MG,
     Dates: start: 20061216, end: 20061219
  7. ETOPOSIDE [Suspect]
     Indication: MULTIPLE MYELOMA
     Dosage: 61.00 MG,
     Dates: start: 20061216, end: 20061219
  8. MELPHALAN (MELPHALAN) VIAL [Suspect]
     Indication: MULTIPLE MYELOMA
  9. DIFLUCAN [Concomitant]
  10. ACYCLOVIR [Concomitant]
  11. PROTONIX [Concomitant]
  12. SENNA (SENNA) [Concomitant]
  13. COLACE (DOCUSATE SODIUM) [Concomitant]
  14. OXYCONTIN [Concomitant]
  15. FLAGYL [Concomitant]
  16. PRIMAXIN [Concomitant]
  17. FOLIC ACID [Concomitant]
  18. MULTIVITAMINS (ERGOCALCIFEROL, PANTHENOL, NICOTINAMIDE, RIBOFLAVIN, TH [Concomitant]
  19. VANCOCIN HYDROCHLORIDE (VANCOMYCIN HYDROCHLORIDE) [Concomitant]
  20. TAMIFLU [Concomitant]
  21. NEUPOGEN [Concomitant]

REACTIONS (10)
  - ACUTE RESPIRATORY DISTRESS SYNDROME [None]
  - COLITIS [None]
  - HAEMODIALYSIS [None]
  - LOSS OF CONSCIOUSNESS [None]
  - MULTI-ORGAN FAILURE [None]
  - PNEUMONIA [None]
  - PNEUMOTHORAX [None]
  - RENAL FAILURE ACUTE [None]
  - SEPSIS [None]
  - UPPER GASTROINTESTINAL HAEMORRHAGE [None]
